FAERS Safety Report 14580983 (Version 1)
Quarter: 2018Q1

REPORT INFORMATION
  Report Type: Spontaneous
  Country: US (occurrence: US)
  Receive Date: 20180228
  Receipt Date: 20180228
  Transmission Date: 20180509
  Serious: No
  Sender: FDA-Public Use
  Company Number: US-PFIZER INC-2018079199

PATIENT
  Age: 65 Year
  Sex: Female

DRUGS (4)
  1. SUTENT [Suspect]
     Active Substance: SUNITINIB MALATE
     Indication: RENAL CANCER
     Dosage: 37.5 MG, CYCLIC (TAKE ONE CAPSULE BY MOUTH EVERY DAY FOR TWO WEEKS ON THEN ONE WEEK OFF)
     Route: 048
  2. FUROSEMIDE. [Concomitant]
     Active Substance: FUROSEMIDE
     Dosage: UNK
  3. PANTOPRAZOLE SODIUM. [Concomitant]
     Active Substance: PANTOPRAZOLE SODIUM
     Dosage: UNK
  4. ASPIRIN. [Concomitant]
     Active Substance: ASPIRIN
     Dosage: UNK

REACTIONS (4)
  - Insomnia [Not Recovered/Not Resolved]
  - Abnormal dreams [Not Recovered/Not Resolved]
  - Diarrhoea [Recovering/Resolving]
  - Fatigue [Not Recovered/Not Resolved]
